FAERS Safety Report 4710253-8 (Version None)
Quarter: 2005Q3

REPORT INFORMATION
  Report Type: 
  Country: None (occurrence: None)
  Receive Date: 20050707
  Receipt Date: 20050627
  Transmission Date: 20060218
  Serious: Yes (Hospitalization)
  Sender: FDA-Public Use
  Company Number: 2005-04-1493

PATIENT
  Age: 88 Year
  Sex: Male
  Weight: 68.0396 kg

DRUGS (2)
  1. ALBUTEROL [Suspect]
     Indication: EMPHYSEMA
     Dosage: 7-8 DOSES QDS
     Dates: start: 20030101, end: 20050101
  2. ALBUTEROL [Concomitant]

REACTIONS (1)
  - PHARMACEUTICAL PRODUCT COMPLAINT [None]
